FAERS Safety Report 22054926 (Version 1)
Quarter: 2023Q1

REPORT INFORMATION
  Report Type: Spontaneous
  Country: US (occurrence: US)
  Receive Date: 20230302
  Receipt Date: 20230302
  Transmission Date: 20230418
  Serious: Yes (Death, Hospitalization)
  Sender: FDA-Public Use
  Company Number: US-TEVA-2023-US-2859615

PATIENT
  Age: 2 Year
  Sex: Female

DRUGS (2)
  1. EPINEPHRINE [Suspect]
     Active Substance: EPINEPHRINE
     Indication: Toxicity to various agents
     Route: 065
  2. LACTULOSE [Suspect]
     Active Substance: LACTULOSE
     Indication: Product used for unknown indication
     Route: 065

REACTIONS (14)
  - Toxicity to various agents [Fatal]
  - Accidental overdose [Fatal]
  - Hypotension [Fatal]
  - Tachycardia [Fatal]
  - Respiratory depression [Fatal]
  - Coma [Fatal]
  - Depressed level of consciousness [Fatal]
  - Seizure [Fatal]
  - Hyperglycaemia [Fatal]
  - Hypernatraemia [Fatal]
  - Metabolic acidosis [Fatal]
  - Osmolar gap [Fatal]
  - Drug ineffective [Fatal]
  - Incorrect dose administered [Fatal]
